FAERS Safety Report 8320280-X (Version None)
Quarter: 2012Q2

REPORT INFORMATION
  Report Type: 
  Country: None (occurrence: None)
  Receive Date: 20120426
  Receipt Date: 20120426
  Transmission Date: 20120825
  Serious: Yes (Other)
  Sender: FDA-Public Use
  Company Number: None

PATIENT
  Age: 9 Year
  Sex: Female
  Weight: 19.8 kg

DRUGS (1)
  1. RAD001 EVEROLIMUS [Suspect]
     Indication: GLIOMA
     Dosage: 4MG PO ONCE DAILY
     Route: 048
     Dates: start: 20120410, end: 20120411

REACTIONS (1)
  - BLINDNESS [None]
